FAERS Safety Report 17219405 (Version 1)
Quarter: 2019Q4

REPORT INFORMATION
  Report Type: Report from Study
  Country: CA (occurrence: CA)
  Receive Date: 20191231
  Receipt Date: 20191231
  Transmission Date: 20200122
  Serious: Yes (Other)
  Sender: FDA-Public Use
  Company Number: CA-TEVA-2019-CA-1159977

PATIENT
  Age: 59 Year
  Sex: Female

DRUGS (9)
  1. CETIRIZINE HYDROCHLORIDE. [Concomitant]
     Active Substance: CETIRIZINE HYDROCHLORIDE
     Dosage: 30 MILLIGRAM DAILY;
     Route: 065
  2. CLARITIN [Concomitant]
     Active Substance: LORATADINE
     Indication: PRODUCT USED FOR UNKNOWN INDICATION
     Dosage: 50 MILLIGRAM DAILY;
     Route: 065
  3. PREDNISONE. [Concomitant]
     Active Substance: PREDNISONE
     Indication: PRODUCT USED FOR UNKNOWN INDICATION
     Route: 065
  4. ATARAX [Concomitant]
     Active Substance: HYDROXYZINE HYDROCHLORIDE
     Indication: PRODUCT USED FOR UNKNOWN INDICATION
     Dosage: 75 MILLIGRAM DAILY;
     Route: 065
  5. OMALIZUMAB. [Suspect]
     Active Substance: OMALIZUMAB
     Route: 058
  6. OMALIZUMAB. [Suspect]
     Active Substance: OMALIZUMAB
     Indication: CHRONIC SPONTANEOUS URTICARIA
     Route: 058
  7. SYNTHROID [Concomitant]
     Active Substance: LEVOTHYROXINE SODIUM
     Indication: PRODUCT USED FOR UNKNOWN INDICATION
     Route: 065
  8. CICLOSPORIN [Suspect]
     Active Substance: CYCLOSPORINE
     Indication: CHRONIC SPONTANEOUS URTICARIA
     Dosage: 100 MILLIGRAM DAILY;
     Route: 065
  9. METHOTREXATE. [Suspect]
     Active Substance: METHOTREXATE
     Indication: PRODUCT USED FOR UNKNOWN INDICATION
     Route: 065

REACTIONS (23)
  - Diarrhoea [Unknown]
  - Formication [Unknown]
  - Palpitations [Unknown]
  - Product use in unapproved indication [Unknown]
  - Feeling hot [Unknown]
  - Photosensitivity reaction [Unknown]
  - Sepsis [Unknown]
  - Erythema [Unknown]
  - Injection site erythema [Unknown]
  - Malaise [Unknown]
  - Pruritus [Unknown]
  - Sinus headache [Unknown]
  - Pain [Unknown]
  - Temperature intolerance [Unknown]
  - Urticaria [Unknown]
  - Cellulitis [Unknown]
  - Nasal oedema [Unknown]
  - Pyrexia [Unknown]
  - Chest discomfort [Unknown]
  - Off label use [Unknown]
  - Rash [Unknown]
  - Concomitant disease aggravated [Unknown]
  - Dizziness [Unknown]
